FAERS Safety Report 18779956 (Version 1)
Quarter: 2021Q1

REPORT INFORMATION
  Report Type: Spontaneous
  Country: GB (occurrence: GB)
  Receive Date: 20210125
  Receipt Date: 20210125
  Transmission Date: 20210419
  Serious: Yes (Life-Threatening, Hospitalization)
  Sender: FDA-Public Use
  Company Number: GB-EPICPHARMA-GB-2021EPCLIT00009

PATIENT
  Age: 56 Year
  Sex: Male

DRUGS (8)
  1. OXYCODONE HYDROCHLORIDE. [Suspect]
     Active Substance: OXYCODONE HYDROCHLORIDE
     Indication: PRODUCT USED FOR UNKNOWN INDICATION
     Route: 048
  2. NOREPINEPHRINE. [Interacting]
     Active Substance: NOREPINEPHRINE
     Route: 065
  3. ROCURONIUM [Interacting]
     Active Substance: ROCURONIUM BROMIDE
     Indication: RESPIRATORY RATE DECREASED
  4. NOREPINEPHRINE. [Interacting]
     Active Substance: NOREPINEPHRINE
     Route: 065
  5. PROPOFOL. [Interacting]
     Active Substance: PROPOFOL
     Indication: RESPIRATORY RATE DECREASED
     Route: 065
  6. RINGERS LACTATE [Interacting]
     Active Substance: CALCIUM CHLORIDE\POTASSIUM CHLORIDE\SODIUM LACTATE
     Indication: HYPOTENSION
  7. MORPHINE SULFATE. [Suspect]
     Active Substance: MORPHINE SULFATE
     Indication: PRODUCT USED FOR UNKNOWN INDICATION
     Route: 048
  8. TRAMADOL. [Suspect]
     Active Substance: TRAMADOL
     Indication: PRODUCT USED FOR UNKNOWN INDICATION
     Route: 048

REACTIONS (4)
  - Respiratory rate decreased [Unknown]
  - Suicide attempt [Unknown]
  - Hypotension [Unknown]
  - Obstructive airways disorder [Unknown]
